FAERS Safety Report 6385711-3 (Version None)
Quarter: 2009Q4

REPORT INFORMATION
  Report Type: 
  Country: None (occurrence: None)
  Receive Date: 20091002
  Receipt Date: 20081006
  Transmission Date: 20100525
  Serious: No
  Sender: FDA-Public Use
  Company Number: US-ASTRAZENECA-2008UW21768

PATIENT
  Age: 82 Year
  Sex: Female
  Weight: 104.3 kg

DRUGS (7)
  1. ARIMIDEX [Suspect]
     Indication: BREAST CANCER
     Route: 048
     Dates: start: 20070601
  2. LEVOXYL [Concomitant]
  3. DIOVAN [Concomitant]
  4. GLUCOPHAGE [Concomitant]
  5. ZYRTEC [Concomitant]
  6. ZOCOR [Concomitant]
  7. MULTI-VITAMIN [Concomitant]

REACTIONS (5)
  - ARTHRITIS [None]
  - HOT FLUSH [None]
  - MUSCLE SPASMS [None]
  - PARAESTHESIA [None]
  - WEIGHT INCREASED [None]
